FAERS Safety Report 15712773 (Version 1)
Quarter: 2018Q4

REPORT INFORMATION
  Report Type: Spontaneous
  Country: US (occurrence: US)
  Receive Date: 20181129
  Receipt Date: 20181129
  Transmission Date: 20190205
  Serious: No
  Sender: FDA-Public Use
  Company Number: None

PATIENT

DRUGS (1)
  1. STELARA [Suspect]
     Active Substance: USTEKINUMAB
     Dosage: FREQUENCY, OTHER
     Route: 058
     Dates: start: 201504

REACTIONS (2)
  - Treatment failure [None]
  - Therapy change [None]
